FAERS Safety Report 6051816-X (Version None)
Quarter: 2009Q1

REPORT INFORMATION
  Report Type: 
  Country: None (occurrence: None)
  Receive Date: 20090121
  Receipt Date: 20090121
  Transmission Date: 20090719
  Serious: Yes (Other)
  Sender: FDA-Public Use
  Company Number: None

PATIENT
  Age: 39 Year
  Sex: Female
  Weight: 63.5036 kg

DRUGS (1)
  1. COMPAZINE [Suspect]
     Indication: NAUSEA
     Dosage: 2 TIMES A DAY PO
     Route: 048
     Dates: start: 20080301, end: 20080301

REACTIONS (4)
  - HYPOAESTHESIA [None]
  - PARAESTHESIA [None]
  - TONGUE PARALYSIS [None]
  - TRISMUS [None]
